FAERS Safety Report 15562606 (Version 1)
Quarter: 2018Q4

REPORT INFORMATION
  Report Type: Spontaneous
  Country: TW (occurrence: TW)
  Receive Date: 20181029
  Receipt Date: 20181029
  Transmission Date: 20190205
  Serious: Yes (Hospitalization)
  Sender: FDA-Public Use
  Company Number: TW-PFIZER INC-2018436546

PATIENT
  Age: 19 Year
  Sex: Male

DRUGS (3)
  1. BENEFIX [Suspect]
     Active Substance: COAGULATION FACTOR IX RECOMBINANT HUMAN\ISOPROPYL ALCOHOL
     Dosage: 3500 IU, 2X/DAY (Q12H)
     Route: 042
     Dates: start: 20181003, end: 20181005
  2. BENEFIX [Suspect]
     Active Substance: COAGULATION FACTOR IX RECOMBINANT HUMAN\ISOPROPYL ALCOHOL
     Dosage: 4000 IU, 1X/DAY (QD)
     Route: 042
     Dates: start: 20181006
  3. BENEFIX [Suspect]
     Active Substance: COAGULATION FACTOR IX RECOMBINANT HUMAN\ISOPROPYL ALCOHOL
     Indication: FACTOR IX DEFICIENCY
     Dosage: 3500 IU, 2X/WEEK
     Route: 042

REACTIONS (2)
  - Ligament sprain [Recovering/Resolving]
  - Haematoma [Recovering/Resolving]

NARRATIVE: CASE EVENT DATE: 20181003
